FAERS Safety Report 5034462-6 (Version None)
Quarter: 2006Q2

REPORT INFORMATION
  Report Type: 
  Country: None (occurrence: None)
  Receive Date: 20060626
  Receipt Date: 20021115
  Transmission Date: 20061013
  Serious: Yes (Hospitalization, Other)
  Sender: FDA-Public Use
  Company Number: PHBS2002JP14028

PATIENT
  Age: 62 Year
  Sex: Male

DRUGS (11)
  1. GLEEVEC [Suspect]
     Indication: CHRONIC MYELOID LEUKAEMIA
     Dosage: 300 MG, QD
     Route: 048
     Dates: start: 20020416, end: 20020902
  2. GLEEVEC [Suspect]
     Dosage: 100 MG, QD
     Route: 048
     Dates: start: 20020918, end: 20020930
  3. GLEEVEC [Suspect]
     Dosage: 200 MG, QD
     Route: 048
     Dates: start: 20021001, end: 20021010
  4. GLEEVEC [Suspect]
     Dosage: 300 MG, QD
     Route: 048
     Dates: start: 20021011, end: 20021024
  5. GLEEVEC [Suspect]
     Dosage: 400 MG, QD
     Route: 048
     Dates: start: 20021025, end: 20030123
  6. GLEEVEC [Suspect]
     Dosage: 400 MG, QD
     Route: 048
     Dates: start: 20020215, end: 20020415
  7. PREDONINE [Concomitant]
     Dosage: 10 MG/D
     Route: 048
     Dates: start: 20020902, end: 20030109
  8. AZAPETINE [Concomitant]
  9. MARZULENE [Concomitant]
     Dosage: 1 G/D
     Route: 048
     Dates: start: 20020902, end: 20030424
  10. ASTOMIN [Concomitant]
     Dosage: 3 DF/D
     Route: 048
     Dates: start: 20020918
  11. MUCODYNE [Concomitant]
     Dosage: 3 DF/D
     Route: 048
     Dates: start: 20020918

REACTIONS (9)
  - COUGH [None]
  - GRANULOMA [None]
  - INTERSTITIAL LUNG DISEASE [None]
  - LABORATORY TEST ABNORMAL [None]
  - OEDEMA [None]
  - PNEUMONITIS [None]
  - PULMONARY SARCOIDOSIS [None]
  - PULMONARY TUBERCULOSIS [None]
  - RASH GENERALISED [None]
